FAERS Safety Report 5783109-X (Version None)
Quarter: 2008Q2

REPORT INFORMATION
  Report Type: 
  Country: None (occurrence: None)
  Receive Date: 20080619
  Receipt Date: 20080619
  Transmission Date: 20081010
  Serious: Yes (Life-Threatening)
  Sender: FDA-Public Use
  Company Number: None

PATIENT
  Sex: Male
  Weight: 20.4119 kg

DRUGS (1)
  1. SINGULAIR [Suspect]
     Indication: ASTHMA
     Dates: start: 20070101, end: 20080515

REACTIONS (3)
  - ANXIETY [None]
  - DEPRESSION [None]
  - SUICIDAL IDEATION [None]
